FAERS Safety Report 6761161-2 (Version None)
Quarter: 2010Q2

REPORT INFORMATION
  Report Type: 
  Country: None (occurrence: None)
  Receive Date: 20100608
  Receipt Date: 20100529
  Transmission Date: 20101027
  Serious: Yes (Congenital Anomaly)
  Sender: FDA-Public Use
  Company Number: IN-ABBOTT-10P-078-0648076-00

PATIENT
  Sex: Female
  Weight: 3.2 kg

DRUGS (4)
  1. CYCLOSPORINE [Suspect]
     Indication: DRUG EXPOSURE DURING PREGNANCY
  2. METFORMIN HCL [Suspect]
     Indication: DRUG EXPOSURE DURING PREGNANCY
  3. LACTOGEN [Concomitant]
     Indication: DRUG USE FOR UNKNOWN INDICATION
     Route: 050
  4. LACTOGEN [Concomitant]

REACTIONS (6)
  - DRUG EXPOSURE DURING PREGNANCY [None]
  - HYPERBILIRUBINAEMIA [None]
  - HYPOCALCAEMIA [None]
  - HYPOGLYCAEMIA [None]
  - POLYCYTHAEMIA [None]
  - SPINA BIFIDA OCCULTA [None]
